FAERS Safety Report 6181654-9 (Version None)
Quarter: 2009Q2

REPORT INFORMATION
  Report Type: 
  Country: None (occurrence: None)
  Receive Date: 20090506
  Receipt Date: 20090428
  Transmission Date: 20091009
  Serious: Yes (Death, Hospitalization)
  Sender: FDA-Public Use
  Company Number: A0782617A

PATIENT
  Sex: Female
  Weight: 61 kg

DRUGS (1)
  1. SERETIDE [Suspect]
     Route: 055
     Dates: start: 20090324, end: 20090329

REACTIONS (4)
  - EMPHYSEMA [None]
  - GASTRIC ULCER [None]
  - PNEUMONIA [None]
  - RENAL FAILURE [None]
